FAERS Safety Report 25517170 (Version 1)
Quarter: 2025Q3

REPORT INFORMATION
  Report Type: Report from Study
  Country: US (occurrence: US)
  Receive Date: 20250704
  Receipt Date: 20250704
  Transmission Date: 20251021
  Serious: Yes (Other)
  Sender: JOHNSON AND JOHNSON
  Company Number: US-JNJFOC-20250629866

PATIENT

DRUGS (4)
  1. TREMFYA [Suspect]
     Active Substance: GUSELKUMAB
     Indication: Crohn^s disease
     Route: 065
  2. TREMFYA [Suspect]
     Active Substance: GUSELKUMAB
  3. TREMFYA [Suspect]
     Active Substance: GUSELKUMAB
  4. TREMFYA [Suspect]
     Active Substance: GUSELKUMAB

REACTIONS (11)
  - Herpes simplex [Unknown]
  - Anaphylactic reaction [Unknown]
  - Fungal skin infection [Unknown]
  - Respiratory tract infection [Unknown]
  - Abdominal pain [Unknown]
  - Injection site reaction [Unknown]
  - Fatigue [Unknown]
  - Headache [Unknown]
  - Arthralgia [Unknown]
  - Diarrhoea [Unknown]
  - Hepatic enzyme increased [Unknown]
